FAERS Safety Report 8161886-0 (Version None)
Quarter: 2012Q1

REPORT INFORMATION
  Report Type: 
  Country: None (occurrence: None)
  Receive Date: 20120224
  Receipt Date: 20111028
  Transmission Date: 20120608
  Serious: No
  Sender: FDA-Public Use
  Company Number: US-BRISTOL-MYERS SQUIBB COMPANY-16206674

PATIENT
  Sex: Female

DRUGS (5)
  1. GLIPIZIDE [Suspect]
     Route: 065
     Dates: end: 20110101
  2. JANUMET [Suspect]
     Indication: TYPE 2 DIABETES MELLITUS
     Dates: start: 20110801, end: 20110101
  3. INSULIN [Suspect]
     Route: 065
     Dates: end: 20110101
  4. METFORMIN HCL [Suspect]
     Route: 065
     Dates: start: 20110101
  5. LANTUS [Suspect]
     Indication: TYPE 2 DIABETES MELLITUS
     Dosage: 1DF=40 UNIT NOS.PARENTERAL INJ,SOL / 100 IU/ML
     Route: 058
     Dates: start: 20110801

REACTIONS (1)
  - DIABETES MELLITUS INADEQUATE CONTROL [None]
